FAERS Safety Report 19736858 (Version 1)
Quarter: 2021Q3

REPORT INFORMATION
  Report Type: Report from Study
  Country: GB (occurrence: GB)
  Receive Date: 20210823
  Receipt Date: 20210823
  Transmission Date: 20211014
  Serious: Yes (Hospitalization)
  Sender: FDA-Public Use
  Company Number: GB-PFIZER INC-202101059124

PATIENT

DRUGS (3)
  1. GEMTUZUMAB OZOGAMICIN [Suspect]
     Active Substance: GEMTUZUMAB OZOGAMICIN
     Dosage: 1.5 MG
     Route: 042
     Dates: start: 20210520, end: 20210520
  2. MITOXANTRONE HCL [Suspect]
     Active Substance: MITOXANTRONE HYDROCHLORIDE
     Dosage: 6.2 MG, 1X/DAY
     Route: 042
     Dates: start: 20210517, end: 20210520
  3. CYTARABINE. [Suspect]
     Active Substance: CYTARABINE
     Dosage: 52 MG, 2X/DAY
     Route: 042
     Dates: start: 20210513, end: 20210526

REACTIONS (1)
  - Febrile neutropenia [Recovered/Resolved]

NARRATIVE: CASE EVENT DATE: 20210528
